FAERS Safety Report 6262739-5 (Version None)
Quarter: 2009Q3

REPORT INFORMATION
  Report Type: 
  Country: None (occurrence: None)
  Receive Date: 20090709
  Receipt Date: 20090701
  Transmission Date: 20100115
  Serious: Yes (Other)
  Sender: FDA-Public Use
  Company Number: US-GENENTECH-285972

PATIENT
  Age: 57 Year
  Sex: Female

DRUGS (7)
  1. RITUXAN [Suspect]
     Indication: DIFFUSE LARGE B-CELL LYMPHOMA
     Dosage: UNK
     Dates: end: 20080901
  2. CYCLOPHOSPHAMIDE [Concomitant]
     Indication: DIFFUSE LARGE B-CELL LYMPHOMA
     Dosage: UNK
     Dates: end: 20080901
  3. DOXORUBICIN HCL [Concomitant]
     Indication: DIFFUSE LARGE B-CELL LYMPHOMA
     Dosage: UNK
     Dates: end: 20080901
  4. VINCRISTINE [Concomitant]
     Indication: DIFFUSE LARGE B-CELL LYMPHOMA
     Dosage: UNK
     Dates: end: 20080901
  5. PREDNISONE [Concomitant]
     Indication: DIFFUSE LARGE B-CELL LYMPHOMA
     Dosage: UNK
     Dates: end: 20080901
  6. LACRIMAL [Concomitant]
     Indication: SJOGREN'S SYNDROME
  7. CONCOMITANT DRUG [Concomitant]
     Indication: DRY MOUTH

REACTIONS (2)
  - SKIN EXFOLIATION [None]
  - WEIGHT DECREASED [None]
